FAERS Safety Report 7243929-1 (Version None)
Quarter: 2011Q1

REPORT INFORMATION
  Report Type: 
  Country: None (occurrence: None)
  Receive Date: 20110125
  Receipt Date: 20110120
  Transmission Date: 20110831
  Serious: Yes (Death)
  Sender: FDA-Public Use
  Company Number: B0694548A

PATIENT
  Age: 52 Year
  Sex: Male

DRUGS (3)
  1. AMPICILLIN SODIUM/SULBACTAM SODIUM [Suspect]
     Dosage: 1875MG PER DAY
     Route: 048
     Dates: end: 20100819
  2. ANTICOAGULANT [Concomitant]
  3. AMPICILLIN SODIUM/SULBACTAM SODIUM [Suspect]
     Indication: WOUND INFECTION
     Route: 065
     Dates: start: 20100812

REACTIONS (1)
  - PULMONARY EMBOLISM [None]
